FAERS Safety Report 7247115-0 (Version None)
Quarter: 2011Q1

REPORT INFORMATION
  Report Type: 
  Country: None (occurrence: None)
  Receive Date: 20110127
  Receipt Date: 20100616
  Transmission Date: 20110831
  Serious: No
  Sender: FDA-Public Use
  Company Number: US-BAUSCH-2010BL003255

PATIENT
  Age: 40 Year
  Sex: Female
  Weight: 61 kg

DRUGS (3)
  1. ALAWAY [Suspect]
     Indication: OFF LABEL USE
     Route: 047
     Dates: start: 20100601, end: 20100601
  2. ALAWAY [Suspect]
     Indication: OCULAR HYPERAEMIA
     Route: 047
     Dates: start: 20100601, end: 20100601
  3. ALAWAY [Suspect]
     Indication: DRY EYE
     Route: 047
     Dates: start: 20100601, end: 20100601

REACTIONS (1)
  - INSTILLATION SITE PAIN [None]
